FAERS Safety Report 13835832 (Version 2)
Quarter: 2017Q3

REPORT INFORMATION
  Report Type: Report from Study
  Country: IN (occurrence: IN)
  Receive Date: 20170804
  Receipt Date: 20170814
  Transmission Date: 20171127
  Serious: Yes (Other)
  Sender: FDA-Public Use
  Company Number: IN-BRISTOL-MYERS SQUIBB COMPANY-BMS-2017-067322

PATIENT
  Age: 62 Year
  Sex: Male

DRUGS (1)
  1. NIVOLUMAB [Suspect]
     Active Substance: NIVOLUMAB
     Indication: RENAL CELL CARCINOMA
     Dosage: 195 MG, Q2WK
     Route: 042
     Dates: start: 20170413, end: 20170629

REACTIONS (3)
  - Malignant neoplasm progression [Unknown]
  - Cerebrovascular accident [Unknown]
  - Paralysis [Unknown]
